FAERS Safety Report 24960833 (Version 1)
Quarter: 2025Q1

REPORT INFORMATION
  Report Type: Spontaneous
  Country: US (occurrence: US)
  Receive Date: 20250212
  Receipt Date: 20250212
  Transmission Date: 20250409
  Serious: No
  Sender: BAYER HEALTHCARE LLC
  Company Number: US-BAYER-2025A017872

PATIENT
  Age: 18 Month
  Sex: Male

DRUGS (1)
  1. MIRALAX [Suspect]
     Active Substance: POLYETHYLENE GLYCOL 3350
     Indication: Constipation
     Route: 048
     Dates: start: 20250205

REACTIONS (3)
  - Vomiting [None]
  - Extra dose administered [Unknown]
  - Product prescribing issue [None]

NARRATIVE: CASE EVENT DATE: 20250205
